FAERS Safety Report 11943025 (Version 1)
Quarter: 2016Q1

REPORT INFORMATION
  Report Type: Spontaneous
  Country: US (occurrence: US)
  Receive Date: 20160125
  Receipt Date: 20160125
  Transmission Date: 20160526
  Serious: No
  Sender: FDA-Public Use
  Company Number: US-UNITED THERAPEUTICS-UNT-2015-009695

PATIENT
  Sex: Female
  Weight: 164.63 kg

DRUGS (2)
  1. REMODULIN [Suspect]
     Active Substance: TREPROSTINIL
     Indication: PULMONARY ARTERIAL HYPERTENSION
     Dosage: 0.001 ?G/KG/MIN, CONTINUING
     Route: 058
     Dates: start: 20150729, end: 201508
  2. SILDENAFIL. [Concomitant]
     Active Substance: SILDENAFIL
     Indication: PRODUCT USED FOR UNKNOWN INDICATION

REACTIONS (7)
  - Infusion site pain [Unknown]
  - Nausea [Unknown]
  - Headache [Unknown]
  - Neuralgia [Unknown]
  - Pain in extremity [Unknown]
  - Pain in jaw [Unknown]
  - Vomiting [Unknown]

NARRATIVE: CASE EVENT DATE: 2015
